FAERS Safety Report 9159172 (Version 2)
Quarter: 2013Q1

REPORT INFORMATION
  Report Type: Spontaneous
  Country: US (occurrence: None)
  Receive Date: 20130212
  Receipt Date: 20130221
  Transmission Date: 20140127
  Serious: Yes (Other)
  Sender: FDA-Public Use
  Company Number: JPI-P-026822

PATIENT
  Age: 45 Year
  Sex: Female
  Weight: 92.99 kg

DRUGS (10)
  1. XYREM [Suspect]
     Indication: CATAPLEXY
     Route: 048
     Dates: start: 20121130
  2. XYREM [Suspect]
     Route: 048
     Dates: start: 20121130
  3. XYREM [Suspect]
     Indication: HYPERTENSION
     Route: 048
     Dates: start: 20121130
  4. XYREM [Suspect]
     Indication: HYPERTENSION
     Route: 048
     Dates: start: 20121130
  5. XYREM [Suspect]
     Indication: HYPERTENSION
     Route: 048
     Dates: start: 20121130
  6. MODAFINIL [Suspect]
     Indication: NARCOLEPSY
     Dates: start: 20121211, end: 20121214
  7. IRBESARTAN [Suspect]
     Indication: HYPERTENSION
     Dates: start: 20121207, end: 20130114
  8. CHLORTHALIDONE [Suspect]
     Indication: HYPERTENSION
     Dates: start: 20130106
  9. FUROSEMIDE [Suspect]
     Indication: HYPERTENSION
     Dates: start: 20130106
  10. DEXTROAMPHETAMINES [Concomitant]

REACTIONS (19)
  - Blood pressure increased [None]
  - Dysphonia [None]
  - Throat irritation [None]
  - Vision blurred [None]
  - Neuropathy peripheral [None]
  - Paraesthesia [None]
  - Swelling face [None]
  - Eye swelling [None]
  - Burning sensation [None]
  - Hypotension [None]
  - Cataplexy [None]
  - Condition aggravated [None]
  - Nausea [None]
  - Vertigo [None]
  - Scleritis [None]
  - Pain [None]
  - Abnormal dreams [None]
  - Nightmare [None]
  - Fatigue [None]
